FAERS Safety Report 6160246-1 (Version None)
Quarter: 2009Q2

REPORT INFORMATION
  Report Type: 
  Country: None (occurrence: None)
  Receive Date: 20090420
  Receipt Date: 20090414
  Transmission Date: 20091009
  Serious: Yes (Other)
  Sender: FDA-Public Use
  Company Number: B0569729A

PATIENT
  Age: 12 Year
  Sex: Male

DRUGS (1)
  1. FLUTIDE DISKUS [Suspect]
     Indication: ASTHMA
     Dosage: 100MCG TWICE PER DAY
     Route: 055

REACTIONS (4)
  - BLOOD PRESSURE DECREASED [None]
  - COLD SWEAT [None]
  - HYPOTENSION [None]
  - POLLAKIURIA [None]
